FAERS Safety Report 10901970 (Version 1)
Quarter: 2015Q1

REPORT INFORMATION
  Report Type: Spontaneous
  Country: US (occurrence: US)
  Receive Date: 20150310
  Receipt Date: 20150310
  Transmission Date: 20150721
  Serious: No
  Sender: FDA-Public Use
  Company Number: US-GLAXOSMITHKLINE-US2015GSK023825

PATIENT
  Age: 72 Year
  Sex: Male

DRUGS (4)
  1. ASPIRIN (BABY) [Concomitant]
  2. JALYN [Suspect]
     Active Substance: DUTASTERIDE\TAMSULOSIN HYDROCHLORIDE
     Indication: PROSTATOMEGALY
     Dosage: 1 MG, 1D
     Route: 048
     Dates: start: 201408
  3. DUTASTERIDE. [Concomitant]
     Active Substance: DUTASTERIDE
  4. TAMLOSIN [Concomitant]

REACTIONS (2)
  - Bladder irritation [Not Recovered/Not Resolved]
  - Nocturia [Not Recovered/Not Resolved]

NARRATIVE: CASE EVENT DATE: 201502
